FAERS Safety Report 9451117 (Version 1)
Quarter: 2013Q3

REPORT INFORMATION
  Report Type: Spontaneous
  Country: PH (occurrence: PH)
  Receive Date: 20130809
  Receipt Date: 20130809
  Transmission Date: 20140515
  Serious: Yes (Hospitalization)
  Sender: FDA-Public Use
  Company Number: PHHY2013PH084671

PATIENT
  Age: 55 Year
  Sex: Female

DRUGS (1)
  1. THIAMAZOLE [Suspect]
     Indication: BASEDOW^S DISEASE
     Dosage: 40 MG, QD

REACTIONS (9)
  - Aplastic anaemia [Recovering/Resolving]
  - Tachycardia [Unknown]
  - Pneumonia klebsiella [Recovering/Resolving]
  - Acinetobacter test positive [Recovering/Resolving]
  - Micrococcus infection [Recovering/Resolving]
  - Haemorrhage [Recovering/Resolving]
  - Agranulocytosis [Recovering/Resolving]
  - Oropharyngeal pain [Unknown]
  - Pyrexia [Recovering/Resolving]
